FAERS Safety Report 8489301-8 (Version None)
Quarter: 2012Q3

REPORT INFORMATION
  Report Type: 
  Country: None (occurrence: None)
  Receive Date: 20120705
  Receipt Date: 20120629
  Transmission Date: 20120928
  Serious: Yes (Other)
  Sender: FDA-Public Use
  Company Number: US-PFIZER INC-2012157023

PATIENT
  Sex: Female

DRUGS (1)
  1. LATANOPROST [Suspect]
     Indication: GLAUCOMA
     Dosage: ONE DROP IN BOTH EYES ONCE A DAY
     Route: 047
     Dates: end: 20120627

REACTIONS (3)
  - GLAUCOMA [None]
  - INTRAOCULAR PRESSURE INCREASED [None]
  - EYE IRRITATION [None]
